FAERS Safety Report 25917126 (Version 1)
Quarter: 2025Q4

REPORT INFORMATION
  Report Type: Spontaneous
  Country: EU (occurrence: EU)
  Receive Date: 20251014
  Receipt Date: 20251014
  Transmission Date: 20260119
  Serious: Yes (Other)
  Sender: ROCHE
  Company Number: None

PATIENT
  Age: 77 Year
  Sex: Female
  Weight: 66.8 kg

DRUGS (11)
  1. AVASTIN [Suspect]
     Active Substance: BEVACIZUMAB
     Indication: Hereditary haemorrhagic telangiectasia
     Route: 042
     Dates: start: 20231109, end: 202509
  2. BISOPROLOL FUMARATE [Concomitant]
     Active Substance: BISOPROLOL FUMARATE
  3. PERINDOPRIL [Concomitant]
     Active Substance: PERINDOPRIL
  4. AMITRIPTYLINE [Concomitant]
     Active Substance: AMITRIPTYLINE
  5. AMLODIPINE BESYLATE [Concomitant]
     Active Substance: AMLODIPINE BESYLATE
  6. SPIRONOLACTONE [Concomitant]
     Active Substance: SPIRONOLACTONE
  7. LEVOTHYROXINE [Concomitant]
     Active Substance: LEVOTHYROXINE
  8. LANSOPRAZOLE [Concomitant]
     Active Substance: LANSOPRAZOLE
  9. NITRAZEPAM [Concomitant]
     Active Substance: NITRAZEPAM
  10. ACETAMINOPHEN [Concomitant]
     Active Substance: ACETAMINOPHEN
  11. ATORVASTATIN [Concomitant]
     Active Substance: ATORVASTATIN

REACTIONS (1)
  - Peripheral artery occlusion [Not Recovered/Not Resolved]

NARRATIVE: CASE EVENT DATE: 20250916
